FAERS Safety Report 8410504 (Version 4)
Quarter: 2013Q2

REPORT INFORMATION
  Report Type: Spontaneous
  Country: CA (occurrence: CA)
  Receive Date: 20120217
  Receipt Date: 20130531
  Transmission Date: 20140414
  Serious: Yes (Other)
  Sender: FDA-Public Use
  Company Number: CA-JNJFOC-20120204253

PATIENT
  Age: 39 Year
  Sex: Female
  Weight: 55 kg

DRUGS (18)
  1. REMICADE [Suspect]
     Indication: UVEITIS
     Route: 042
  2. REMICADE [Suspect]
     Indication: UVEITIS
     Route: 042
     Dates: start: 20110315
  3. REMICADE [Suspect]
     Indication: UVEITIS
     Route: 042
     Dates: start: 20111104
  4. REMICADE [Suspect]
     Indication: UVEITIS
     Route: 042
     Dates: start: 20111227, end: 20111227
  5. REMICADE [Suspect]
     Indication: ANKYLOSING SPONDYLITIS
     Route: 042
  6. REMICADE [Suspect]
     Indication: ANKYLOSING SPONDYLITIS
     Route: 042
     Dates: start: 20110315
  7. REMICADE [Suspect]
     Indication: ANKYLOSING SPONDYLITIS
     Route: 042
     Dates: start: 20111104
  8. REMICADE [Suspect]
     Indication: ANKYLOSING SPONDYLITIS
     Route: 042
     Dates: start: 20111227, end: 20111227
  9. BENADRYL [Concomitant]
     Indication: PREMEDICATION
     Route: 042
  10. BENADRYL [Concomitant]
     Indication: PREMEDICATION
     Dosage: 25MG TO 50MG
     Route: 042
  11. CELL CEPT [Concomitant]
     Route: 048
  12. NEXIUM [Concomitant]
     Route: 048
  13. DETROL [Concomitant]
     Route: 048
  14. PIROXICAM [Concomitant]
     Route: 048
  15. AMOXIL [Concomitant]
     Route: 048
  16. EMPRACET [Concomitant]
     Dosage: PER DAY AS NECESSSARY
     Route: 048
  17. TYLENOL [Concomitant]
     Indication: PREMEDICATION
     Route: 048
  18. SOLUMEDROL (METHYLPREDNISOLONE SODIUM SUCCINATE) [Concomitant]
     Indication: PREMEDICATION
     Route: 042

REACTIONS (4)
  - Laryngeal oedema [Recovered/Resolved]
  - Throat tightness [Recovered/Resolved]
  - Off label use [Unknown]
  - Throat irritation [Recovered/Resolved]
